FAERS Safety Report 10975687 (Version 3)
Quarter: 2015Q2

REPORT INFORMATION
  Report Type: Spontaneous
  Country: FR (occurrence: FR)
  Receive Date: 20150401
  Receipt Date: 20150407
  Transmission Date: 20150821
  Serious: Yes (Other)
  Sender: FDA-Public Use
  Company Number: FR-PFIZER INC-2015108318

PATIENT
  Age: 64 Year
  Sex: Male

DRUGS (13)
  1. TAHOR [Suspect]
     Active Substance: ATORVASTATIN CALCIUM
     Dosage: 10 MG, 1X/DAY
     Route: 048
     Dates: start: 20141119
  2. PREVISCAN [Interacting]
     Active Substance: FLUINDIONE
     Dosage: UNK
     Route: 048
     Dates: start: 20141119
  3. VENLAFAXINE HCL [Interacting]
     Active Substance: VENLAFAXINE HYDROCHLORIDE
     Dosage: 75 MG, 1X/DAY
     Route: 048
     Dates: start: 20141120
  4. PREVISCAN [Interacting]
     Active Substance: FLUINDIONE
     Dosage: UNK
     Route: 048
     Dates: start: 20150126
  5. XEROQUEL L.P. [Interacting]
     Active Substance: QUETIAPINE FUMARATE
     Dosage: 400 MG, UNK
     Route: 048
     Dates: start: 20150123
  6. XEROQUEL L.P. [Interacting]
     Active Substance: QUETIAPINE FUMARATE
     Dosage: 600 MG, 1X/DAY
     Route: 048
     Dates: start: 20150209
  7. PREVISCAN [Interacting]
     Active Substance: FLUINDIONE
     Dosage: UNK
     Route: 048
     Dates: start: 20150212
  8. XEROQUEL L.P. [Interacting]
     Active Substance: QUETIAPINE FUMARATE
     Dosage: 600 MG, 1X/DAY
     Route: 048
     Dates: start: 20150202
  9. TRIATEC [Interacting]
     Active Substance: RAMIPRIL
     Dosage: 5 MG, 1X/DAY
     Route: 048
     Dates: start: 20141120
  10. XEROQUEL L.P. [Interacting]
     Active Substance: QUETIAPINE FUMARATE
     Dosage: 800 MG, 1X/DAY
     Route: 048
     Dates: start: 20150212
  11. PREVISCAN [Interacting]
     Active Substance: FLUINDIONE
     Dosage: 2 DF, DAILY
     Dates: start: 20150216
  12. XEROQUEL L.P. [Interacting]
     Active Substance: QUETIAPINE FUMARATE
     Dosage: 50 MG, UNK
     Route: 048
     Dates: start: 20150115
  13. XEROQUEL L.P. [Interacting]
     Active Substance: QUETIAPINE FUMARATE
     Dosage: 400 MG, 1X/DAY
     Route: 048
     Dates: start: 20150126

REACTIONS (2)
  - Drug interaction [Recovering/Resolving]
  - International normalised ratio increased [Recovering/Resolving]

NARRATIVE: CASE EVENT DATE: 20150210
